FAERS Safety Report 13953901 (Version 1)
Quarter: 2017Q3

REPORT INFORMATION
  Report Type: Spontaneous
  Country: US (occurrence: US)
  Receive Date: 20170908
  Receipt Date: 20170908
  Transmission Date: 20171128
  Serious: No
  Sender: FDA-Public Use
  Company Number: None

PATIENT
  Sex: Female

DRUGS (1)
  1. LOSARTAN. [Suspect]
     Active Substance: LOSARTAN
     Route: 048
     Dates: start: 20170901, end: 20170908

REACTIONS (5)
  - Headache [None]
  - Dizziness [None]
  - Malaise [None]
  - Blood pressure fluctuation [None]
  - Nausea [None]
